FAERS Safety Report 4872060-5 (Version None)
Quarter: 2005Q4

REPORT INFORMATION
  Report Type: 
  Country: None (occurrence: None)
  Receive Date: 20051230
  Receipt Date: 20051220
  Transmission Date: 20060501
  Serious: Yes (Other)
  Sender: FDA-Public Use
  Company Number: 2005BI014115

PATIENT
  Age: 55 Year
  Sex: Female

DRUGS (1)
  1. AVONEX [Suspect]
     Indication: MULTIPLE SCLEROSIS
     Dosage: IM
     Route: 030
     Dates: start: 20011124, end: 20050625

REACTIONS (5)
  - ASTHENIA [None]
  - COLON CANCER [None]
  - ENDOMETRIAL CANCER STAGE III [None]
  - MALAISE [None]
  - OVARIAN CANCER [None]
